FAERS Safety Report 8975704 (Version 2)
Quarter: 2013Q1

REPORT INFORMATION
  Report Type: Spontaneous
  Country: US (occurrence: US)
  Receive Date: 20121219
  Receipt Date: 20130121
  Transmission Date: 20140127
  Serious: Yes (Other)
  Sender: FDA-Public Use
  Company Number: PHEH2012US024764

PATIENT
  Age: 58 Year
  Sex: Female

DRUGS (2)
  1. ZOMETA [Suspect]
     Dosage: 4 MG, EVERY 8 WEEKS
     Route: 042
     Dates: start: 20120705
  2. FASLODEX [Suspect]
     Indication: BREAST CANCER
     Dosage: 500 MG, UNK
     Route: 030
     Dates: start: 20120508

REACTIONS (4)
  - Benign intracranial hypertension [Unknown]
  - Thyroid neoplasm [Unknown]
  - Hot flush [Unknown]
  - Pain [Recovering/Resolving]
